FAERS Safety Report 4952486-1 (Version None)
Quarter: 2006Q1

REPORT INFORMATION
  Report Type: 
  Country: None (occurrence: None)
  Receive Date: 20060317
  Receipt Date: 20060310
  Transmission Date: 20060701
  Serious: Yes (Life-Threatening, Hospitalization)
  Sender: FDA-Public Use
  Company Number: 2003-12-0682

PATIENT
  Age: 47 Year
  Sex: Male

DRUGS (7)
  1. PHENYTOIN [Suspect]
     Indication: EPILEPSY
     Dosage: 500 MG QD ORAL
     Route: 048
     Dates: start: 20030913, end: 20031201
  2. TEMODAL [Suspect]
     Indication: GLIOBLASTOMA
     Dosage: UNKNOWN - 400 MG ORAL
     Route: 048
     Dates: start: 20030925, end: 20040809
  3. NAVOBAN [Concomitant]
  4. PREDNISON [Concomitant]
  5. NEXIUM [Concomitant]
  6. MYCOSTATIN ORAL SUSPENSION [Concomitant]
  7. TEMESTA [Concomitant]

REACTIONS (2)
  - ERYTHEMA MULTIFORME [None]
  - TOXIC EPIDERMAL NECROLYSIS [None]
